FAERS Safety Report 8247001-3 (Version None)
Quarter: 2012Q1

REPORT INFORMATION
  Report Type: 
  Country: None (occurrence: None)
  Receive Date: 20120330
  Receipt Date: 20120330
  Transmission Date: 20120608
  Serious: Yes (Other)
  Sender: FDA-Public Use
  Company Number: None

PATIENT
  Sex: Female
  Weight: 69.399 kg

DRUGS (2)
  1. MIRENA [Suspect]
     Indication: CONTRACEPTION
     Dosage: INSERTED VAGINALY
  2. MIRENA [Concomitant]

REACTIONS (17)
  - ABDOMINAL PAIN [None]
  - ABDOMINAL DISTENSION [None]
  - ALOPECIA [None]
  - ARTHRALGIA [None]
  - WEIGHT INCREASED [None]
  - POLLAKIURIA [None]
  - BREAST TENDERNESS [None]
  - DYSPAREUNIA [None]
  - HEADACHE [None]
  - DAYDREAMING [None]
  - MOOD SWINGS [None]
  - ANXIETY [None]
  - DEPRESSION [None]
  - SUICIDAL IDEATION [None]
  - FATIGUE [None]
  - MUSCLE SPASMS [None]
  - DISTURBANCE IN ATTENTION [None]
